FAERS Safety Report 21736125 (Version 2)
Quarter: 2023Q4

REPORT INFORMATION
  Report Type: Spontaneous
  Country: US (occurrence: US)
  Receive Date: 20221215
  Receipt Date: 20231115
  Transmission Date: 20240110
  Serious: No
  Sender: FDA-Public Use
  Company Number: US-NOVOPROD-968105

PATIENT
  Sex: Male

DRUGS (2)
  1. LEVEMIR [Suspect]
     Active Substance: INSULIN DETEMIR
     Indication: Type 1 diabetes mellitus
     Dosage: 16 IU, QD
     Route: 058
     Dates: start: 2012
  2. NOVOLOG [Suspect]
     Active Substance: INSULIN ASPART
     Indication: Type 1 diabetes mellitus
     Dosage: 4 TIMES A DAY/2-10 UNITS EACH TIME/SLIDING SCALE
     Route: 058
     Dates: start: 2007

REACTIONS (4)
  - Dehydration [Not Recovered/Not Resolved]
  - Constipation [Not Recovered/Not Resolved]
  - Dry eye [Not Recovered/Not Resolved]
  - Dysuria [Not Recovered/Not Resolved]

NARRATIVE: CASE EVENT DATE: 20140101
